FAERS Safety Report 16439668 (Version 1)
Quarter: 2019Q2

REPORT INFORMATION
  Report Type: Spontaneous
  Country: DE (occurrence: DE)
  Receive Date: 20190617
  Receipt Date: 20190617
  Transmission Date: 20190711
  Serious: Yes (Hospitalization, Other)
  Sender: FDA-Public Use
  Company Number: DE-SA-2019SA160803

PATIENT
  Age: 25 Year
  Sex: Female

DRUGS (4)
  1. LEMTRADA [Suspect]
     Active Substance: ALEMTUZUMAB
     Dosage: 12 MG, QD
     Route: 041
     Dates: start: 20150402, end: 20150406
  2. LEMTRADA [Suspect]
     Active Substance: ALEMTUZUMAB
     Indication: MULTIPLE SCLEROSIS
     Dosage: 12 MG, QD
     Route: 041
     Dates: start: 20160405, end: 20160407
  3. VENLAFAXINE [Concomitant]
     Active Substance: VENLAFAXINE HYDROCHLORIDE
     Dosage: 150 MG
     Dates: start: 2018
  4. LAMOTRIGINE. [Concomitant]
     Active Substance: LAMOTRIGINE
     Dosage: 50 UNK
     Dates: start: 20190505

REACTIONS (15)
  - Lymphadenitis [Recovered/Resolved]
  - Lymphoid tissue hyperplasia [Recovered/Resolved]
  - Bacterial test [Unknown]
  - Blood urine present [Unknown]
  - Hypoaesthesia [Not Recovered/Not Resolved]
  - Urinary sediment present [Unknown]
  - White blood cells urine [Unknown]
  - Contusion [Not Recovered/Not Resolved]
  - Depression [Recovered/Resolved]
  - Polyarteritis nodosa [Recovered/Resolved]
  - Dysaesthesia [Not Recovered/Not Resolved]
  - Influenza [Not Recovered/Not Resolved]
  - Neck mass [Unknown]
  - Micturition urgency [Recovering/Resolving]
  - Headache [Unknown]

NARRATIVE: CASE EVENT DATE: 201712
